FAERS Safety Report 8630917 (Version 2)
Quarter: 2013Q1

REPORT INFORMATION
  Report Type: Spontaneous
  Country: US (occurrence: US)
  Receive Date: 20120622
  Receipt Date: 20130122
  Transmission Date: 20140127
  Serious: Yes (Hospitalization, Other)
  Sender: FDA-Public Use
  Company Number: PHEH2012US012233

PATIENT
  Age: 62 Year
  Sex: Female
  Weight: 115.6 kg

DRUGS (1)
  1. RECLAST [Suspect]
     Indication: OSTEOPOROSIS
     Dosage: UNK UKN, UNK
     Route: 042
     Dates: start: 20120613

REACTIONS (11)
  - Muscular dystrophy [Unknown]
  - Chest pain [Unknown]
  - Burning sensation [Unknown]
  - Arthralgia [Unknown]
  - Pain [Unknown]
  - Asthenia [Unknown]
  - Myalgia [Unknown]
  - Blood glucose increased [Unknown]
  - Blood sodium increased [Unknown]
  - Bone pain [Unknown]
  - Dyspnoea [Unknown]
